FAERS Safety Report 12949788 (Version 1)
Quarter: 2016Q4

REPORT INFORMATION
  Report Type: Spontaneous
  Country: US (occurrence: US)
  Receive Date: 20161116
  Receipt Date: 20161116
  Transmission Date: 20170207
  Serious: No
  Sender: FDA-Public Use
  Company Number: None

PATIENT
  Age: 55 Year
  Sex: Male

DRUGS (3)
  1. MVI [Concomitant]
     Active Substance: VITAMINS
  2. FLUOROURACIL. [Suspect]
     Active Substance: FLUOROURACIL
     Indication: ACTINIC KERATOSIS
     Dosage: ?          QUANTITY:1 AMOUNT;OTHER ROUTE:TO AFFECTED AREA?
  3. APAP [Concomitant]
     Active Substance: ACETAMINOPHEN

REACTIONS (5)
  - Alopecia [None]
  - Pain [None]
  - Skin disorder [None]
  - Skin wrinkling [None]
  - Nerve injury [None]

NARRATIVE: CASE EVENT DATE: 20160531
